FAERS Safety Report 16952712 (Version 1)
Quarter: 2019Q4

REPORT INFORMATION
  Report Type: Spontaneous
  Country: AU (occurrence: AU)
  Receive Date: 20191023
  Receipt Date: 20191023
  Transmission Date: 20200122
  Serious: Yes (Hospitalization, Other)
  Sender: FDA-Public Use
  Company Number: AU-MYLANLABS-2019M1100477

PATIENT
  Age: 63 Year
  Sex: Female

DRUGS (1)
  1. WARFARIN [Suspect]
     Active Substance: WARFARIN
     Indication: ATRIAL FIBRILLATION
     Dosage: UNK
     Route: 065

REACTIONS (8)
  - Calciphylaxis [Recovering/Resolving]
  - Splenic infarction [Recovering/Resolving]
  - Gastric ulcer [Recovering/Resolving]
  - Gastrointestinal necrosis [Recovering/Resolving]
  - Melaena [Recovering/Resolving]
  - Intestinal ischaemia [Recovering/Resolving]
  - Gastrointestinal haemorrhage [Recovered/Resolved]
  - Arteriosclerosis [Recovering/Resolving]
